FAERS Safety Report 7703760-7 (Version None)
Quarter: 2011Q3

REPORT INFORMATION
  Report Type: 
  Country: None (occurrence: None)
  Receive Date: 20110823
  Receipt Date: 20110809
  Transmission Date: 20111222
  Serious: Yes (Other)
  Sender: FDA-Public Use
  Company Number: JP-JNJFOC-20110809071

PATIENT
  Age: 40 Year
  Sex: Male
  Weight: 80 kg

DRUGS (10)
  1. RHEUMATREX [Concomitant]
     Indication: PSORIATIC ARTHROPATHY
     Route: 048
     Dates: start: 20100913, end: 20101220
  2. REMICADE [Suspect]
     Indication: PSORIATIC ARTHROPATHY
     Dosage: TOTAL 5 INFUSIONS
     Route: 042
     Dates: start: 20101220
  3. SELBEX [Concomitant]
     Dosage: START PRIOR TO 1ST INFLIXIMAB DOSE
     Route: 048
     Dates: end: 20101220
  4. REMICADE [Suspect]
     Dosage: 2ND DOSE
     Route: 042
     Dates: start: 20100927
  5. REMICADE [Suspect]
     Dosage: 2ND DOSE
     Route: 042
     Dates: start: 20100830
  6. REMICADE [Suspect]
     Dosage: 1ST DOSE
     Route: 042
     Dates: start: 20100803
  7. REMICADE [Suspect]
     Dosage: 2ND DOSE
     Route: 042
     Dates: start: 20101025
  8. PREDNISOLONE [Concomitant]
     Indication: PSORIATIC ARTHROPATHY
     Dosage: START PRIOR TO 1ST INFLIXIMAB DOSE
     Dates: end: 20101220
  9. FOLIC ACID [Concomitant]
     Indication: FOLATE DEFICIENCY
     Route: 048
     Dates: start: 20100913, end: 20101220
  10. LOXONIN [Concomitant]
     Indication: PSORIATIC ARTHROPATHY
     Route: 048
     Dates: end: 20101220

REACTIONS (1)
  - DIVERTICULITIS [None]
